FAERS Safety Report 6445660-9 (Version None)
Quarter: 2009Q4

REPORT INFORMATION
  Report Type: 
  Country: None (occurrence: None)
  Receive Date: 20091118
  Receipt Date: 20091118
  Transmission Date: 20100525
  Serious: Yes (Other)
  Sender: FDA-Public Use
  Company Number: None

PATIENT
  Age: 35 Year
  Sex: Male
  Weight: 133.8111 kg

DRUGS (1)
  1. CHANTIX [Suspect]
     Indication: SMOKING CESSATION THERAPY
     Dosage: 1MG TWICE DAILY PO
     Route: 048

REACTIONS (6)
  - ABNORMAL DREAMS [None]
  - ANGER [None]
  - DISTURBANCE IN ATTENTION [None]
  - IMPAIRED WORK ABILITY [None]
  - IRRITABILITY [None]
  - MOOD ALTERED [None]
